FAERS Safety Report 25241571 (Version 2)
Quarter: 2025Q2

REPORT INFORMATION
  Report Type: Spontaneous
  Country: US (occurrence: US)
  Receive Date: 20250426
  Receipt Date: 20250522
  Transmission Date: 20250716
  Serious: Yes (Other)
  Sender: AMGEN
  Company Number: US-AMGEN-USASP2025079511

PATIENT
  Sex: Female

DRUGS (2)
  1. REPATHA [Suspect]
     Active Substance: EVOLOCUMAB
     Indication: Product used for unknown indication
     Route: 065
  2. REPATHA [Suspect]
     Active Substance: EVOLOCUMAB
     Route: 065
     Dates: start: 20250419

REACTIONS (7)
  - Cardiac failure [Unknown]
  - Respiratory tract congestion [Unknown]
  - Rubber sensitivity [Unknown]
  - Weight decreased [Unknown]
  - Nasopharyngitis [Unknown]
  - Injection site bruising [Unknown]
  - Asthma [Unknown]

NARRATIVE: CASE EVENT DATE: 20250301
